FAERS Safety Report 7721201-0 (Version None)
Quarter: 2011Q3

REPORT INFORMATION
  Report Type: 
  Country: None (occurrence: None)
  Receive Date: 20110825
  Receipt Date: 20110815
  Transmission Date: 20111222
  Serious: Yes (Hospitalization)
  Sender: FDA-Public Use
  Company Number: 15669682

PATIENT
  Age: 28 Year
  Sex: Male

DRUGS (13)
  1. LASIX [Concomitant]
  2. PANTOPRAZOLE SODIUM [Concomitant]
  3. VITAMIN D [Concomitant]
  4. TYLENOL W/ CODEINE NO. 3 [Concomitant]
  5. APIXABAN [Suspect]
     Indication: EMBOLISM
     Dosage: ORAL
     Route: 048
     Dates: start: 20110217, end: 20110409
  6. WARFARIN SODIUM [Suspect]
     Indication: EMBOLISM
  7. ENOXAPARIN SODIUM [Suspect]
     Indication: EMBOLISM
     Dosage: SC
     Route: 058
     Dates: start: 20110217, end: 20110221
  8. PREDNISONE [Concomitant]
  9. SYNTHROID [Concomitant]
  10. CHANTIX [Concomitant]
  11. COVERSYL PLUS (PERINDOPRIL ERBUMINE + INDAPAMIDE) [Concomitant]
  12. TUMS (CALCIUM CARBONATE) [Concomitant]
  13. PLACEBO [Suspect]
     Indication: EMBOLISM
     Dates: start: 20110217

REACTIONS (3)
  - RENAL FAILURE ACUTE [None]
  - GLOMERULONEPHRITIS MEMBRANOPROLIFERATIVE [None]
  - DIALYSIS [None]
